FAERS Safety Report 15489834 (Version 1)
Quarter: 2018Q4

REPORT INFORMATION
  Report Type: Spontaneous
  Country: RU (occurrence: RU)
  Receive Date: 20181011
  Receipt Date: 20181011
  Transmission Date: 20190205
  Serious: Yes (Other)
  Sender: FDA-Public Use
  Company Number: RU-ASTRAZENECA-2018SE26132

PATIENT
  Age: 43 Year
  Sex: Male
  Weight: 103 kg

DRUGS (10)
  1. BRILINTA [Suspect]
     Active Substance: TICAGRELOR
     Indication: MYOCARDIAL INFARCTION
     Route: 048
     Dates: start: 201801
  2. GLUCOPHAGE [Concomitant]
     Active Substance: METFORMIN HYDROCHLORIDE
  3. BRILINTA [Suspect]
     Active Substance: TICAGRELOR
     Indication: MYOCARDIAL INFARCTION
     Route: 048
  4. PERINEVA [Concomitant]
     Active Substance: PERINDOPRIL ERBUMINE
  5. CONCOR [Concomitant]
     Active Substance: BISOPROLOL FUMARATE
  6. CARDIOMAGNYL [Concomitant]
     Active Substance: ASPIRIN\MAGNESIUM HYDROXIDE
  7. SUVARDIO [Concomitant]
     Active Substance: ROSUVASTATIN CALCIUM
  8. FEVARIN [Concomitant]
     Active Substance: FLUVOXAMINE MALEATE
  9. OMEZ [Concomitant]
     Active Substance: OMEPRAZOLE
  10. CORONAL [Concomitant]

REACTIONS (2)
  - Angina pectoris [Not Recovered/Not Resolved]
  - Cerebral arteriosclerosis [Not Recovered/Not Resolved]
